FAERS Safety Report 17586280 (Version 1)
Quarter: 2020Q1

REPORT INFORMATION
  Report Type: Report from Study
  Country: GB (occurrence: GB)
  Receive Date: 20200326
  Receipt Date: 20200326
  Transmission Date: 20200409
  Serious: Yes (Other)
  Sender: FDA-Public Use
  Company Number: NVSC2020GB080040

PATIENT
  Sex: Female

DRUGS (1)
  1. HYRIMOZ [Suspect]
     Active Substance: ADALIMUMAB-ADAZ
     Indication: COLITIS ULCERATIVE
     Dosage: 40 MG, FORTNIGHTLY
     Route: 058
     Dates: start: 20200114

REACTIONS (4)
  - Feeling cold [Unknown]
  - Infection [Unknown]
  - Oropharyngeal pain [Unknown]
  - Lymphadenopathy [Not Recovered/Not Resolved]
